FAERS Safety Report 9109411 (Version 2)
Quarter: 2013Q1

REPORT INFORMATION
  Report Type: Spontaneous
  Country: FR (occurrence: FR)
  Receive Date: 20130222
  Receipt Date: 20130307
  Transmission Date: 20140127
  Serious: Yes (Life-Threatening, Other)
  Sender: FDA-Public Use
  Company Number: PHHY2013FR017180

PATIENT
  Sex: Female

DRUGS (2)
  1. EXELON PATCH [Suspect]
     Indication: DEMENTIA ALZHEIMER^S TYPE
     Dosage: 4.6 UKN, QD
     Route: 062
     Dates: start: 20121230, end: 20121231
  2. EBIXA [Suspect]
     Indication: DEMENTIA ALZHEIMER^S TYPE
     Dosage: 20 MG, UNK
     Route: 048
     Dates: start: 20100323, end: 20130107

REACTIONS (7)
  - Apparent death [Unknown]
  - Confusional state [Recovering/Resolving]
  - Abasia [Recovering/Resolving]
  - Aphagia [Recovering/Resolving]
  - Drug-induced liver injury [Recovering/Resolving]
  - Fall [Unknown]
  - Decreased appetite [Recovering/Resolving]
